FAERS Safety Report 15991337 (Version 4)
Quarter: 2020Q1

REPORT INFORMATION
  Report Type: Spontaneous
  Country: US (occurrence: US)
  Receive Date: 20190221
  Receipt Date: 20200306
  Transmission Date: 20200409
  Serious: Yes (Death, Other)
  Sender: FDA-Public Use
  Company Number: US-ASTRAZENECA-2018SF65908

PATIENT
  Age: 29670 Day
  Sex: Female

DRUGS (29)
  1. NEXIUM [Suspect]
     Active Substance: ESOMEPRAZOLE MAGNESIUM
     Route: 048
     Dates: start: 20120507
  2. DEXILANT [Suspect]
     Active Substance: DEXLANSOPRAZOLE
     Route: 065
  3. AMLODIPINE [Concomitant]
     Active Substance: AMLODIPINE BESYLATE
     Dates: start: 20160418
  4. LIPITOR [Concomitant]
     Active Substance: ATORVASTATIN CALCIUM
     Dosage: 20.0MG UNKNOWN
     Route: 048
     Dates: start: 20120831
  5. AGGRENOX [Concomitant]
     Active Substance: ASPIRIN\DIPYRIDAMOLE
     Route: 048
     Dates: start: 20120507
  6. CARDIZEM [Concomitant]
     Active Substance: DILTIAZEM HYDROCHLORIDE
     Route: 048
     Dates: start: 20110721
  7. NYSTATIN. [Concomitant]
     Active Substance: NYSTATIN
     Route: 048
     Dates: start: 20120419
  8. CEFUROXIME. [Concomitant]
     Active Substance: CEFUROXIME
     Dates: start: 20120904
  9. PRANDIN [Concomitant]
     Active Substance: REPAGLINIDE
  10. DEXILANT [Suspect]
     Active Substance: DEXLANSOPRAZOLE
     Route: 065
     Dates: start: 20160525
  11. PLAVIX [Concomitant]
     Active Substance: CLOPIDOGREL BISULFATE
     Route: 048
     Dates: start: 20140422
  12. AMIODARONE [Concomitant]
     Active Substance: AMIODARONE
     Route: 048
  13. HYDROCORTISONE. [Concomitant]
     Active Substance: HYDROCORTISONE
  14. CORICIDIN (ACETAMINOPHEN/CHLORPHENIRAMINE) [Concomitant]
     Active Substance: ACETAMINOPHEN\CHLORPHENIRAMINE
  15. FERROUS SULFATE. [Concomitant]
     Active Substance: FERROUS SULFATE
  16. HECTOROL [Concomitant]
     Active Substance: DOXERCALCIFEROL
     Dosage: 0.5MG UNKNOWN
     Route: 048
     Dates: start: 20110107
  17. DOXAZOSIN [Concomitant]
     Active Substance: DOXAZOSIN MESYLATE
  18. SENEXON-S [Concomitant]
     Active Substance: DOCUSATE SODIUM\SENNOSIDES A AND B
     Route: 048
  19. NEXIUM [Suspect]
     Active Substance: ESOMEPRAZOLE MAGNESIUM
     Route: 048
     Dates: start: 2009, end: 2016
  20. NEXIUM [Suspect]
     Active Substance: ESOMEPRAZOLE MAGNESIUM
     Route: 048
     Dates: start: 20091006
  21. DEXILANT [Suspect]
     Active Substance: DEXLANSOPRAZOLE
     Route: 065
     Dates: start: 2009, end: 2016
  22. DESONIDE. [Concomitant]
     Active Substance: DESONIDE
     Dates: start: 20110926
  23. IPRATROPIUM [Concomitant]
     Active Substance: IPRATROPIUM
     Dates: start: 20090620
  24. NEXIUM [Suspect]
     Active Substance: ESOMEPRAZOLE MAGNESIUM
     Route: 048
  25. METOPROLOL SUCCINATE. [Concomitant]
     Active Substance: METOPROLOL SUCCINATE
     Route: 048
     Dates: start: 20110822
  26. LIDOCAINE. [Concomitant]
     Active Substance: LIDOCAINE
  27. OXYCODONE ACETAMINOPHEN [Concomitant]
     Active Substance: ACETAMINOPHEN\OXYCODONE HYDROCHLORIDE
  28. CIPROFLOXACIN. [Concomitant]
     Active Substance: CIPROFLOXACIN
     Dosage: 250.0MG UNKNOWN
     Route: 048
     Dates: start: 20100706
  29. PANTOPRAZOLE [Concomitant]
     Active Substance: PANTOPRAZOLE
     Route: 048
     Dates: start: 20141023

REACTIONS (8)
  - Hyperparathyroidism secondary [Unknown]
  - Acute kidney injury [Unknown]
  - Chronic kidney disease [Unknown]
  - Nephrogenic anaemia [Unknown]
  - Rebound acid hypersecretion [Unknown]
  - Renal failure [Unknown]
  - Death [Fatal]
  - End stage renal disease [Unknown]

NARRATIVE: CASE EVENT DATE: 20110110
